FAERS Safety Report 9202141 (Version 1)
Quarter: 2013Q2

REPORT INFORMATION
  Report Type: Spontaneous
  Country: RU (occurrence: RU)
  Receive Date: 20130401
  Receipt Date: 20130401
  Transmission Date: 20140414
  Serious: Yes (Hospitalization)
  Sender: FDA-Public Use
  Company Number: RU-ASTRAZENECA-2013SE20071

PATIENT
  Age: 20292 Day
  Sex: Female
  Weight: 80 kg

DRUGS (1)
  1. MARCAINE [Suspect]
     Indication: SPINAL ANAESTHESIA
     Route: 037
     Dates: start: 20130319

REACTIONS (1)
  - Post lumbar puncture syndrome [Not Recovered/Not Resolved]
